FAERS Safety Report 9596048 (Version 2)
Quarter: 2014Q1

REPORT INFORMATION
  Report Type: Spontaneous
  Country: US (occurrence: US)
  Receive Date: 20131004
  Receipt Date: 20140207
  Transmission Date: 20141002
  Serious: Yes (Congenital Anomaly, Other)
  Sender: FDA-Public Use
  Company Number: US-PFIZER INC-2013283661

PATIENT
  Sex: Female

DRUGS (12)
  1. ZOLOFT [Suspect]
     Dosage: UNK
     Route: 064
     Dates: start: 2006, end: 2010
  2. SERTRALINE HCL [Suspect]
     Indication: ANXIETY
     Dosage: UNK
     Route: 064
     Dates: start: 2006, end: 2010
  3. SERTRALINE HCL [Suspect]
     Indication: DEPRESSION
  4. SERTRALINE HCL [Suspect]
     Indication: AFFECTIVE DISORDER
  5. PROPRANOLOL [Concomitant]
     Dosage: UNK
     Route: 064
  6. PRENATE DHA [Concomitant]
     Dosage: UNK
     Route: 064
  7. CHLORHEXIDINE [Concomitant]
     Dosage: UNK
     Route: 064
  8. CELEBREX [Concomitant]
     Dosage: UNK
     Route: 064
  9. LORAZEPAM [Concomitant]
     Dosage: UNK
     Route: 064
  10. ZOVIA [Concomitant]
     Dosage: UNK
     Route: 064
  11. MEPERIDINE [Concomitant]
     Dosage: UNK
     Route: 064
  12. DIAZEPAM [Concomitant]
     Dosage: UNK
     Route: 064

REACTIONS (12)
  - Maternal exposure during pregnancy [Recovered/Resolved]
  - Arnold-Chiari malformation [Unknown]
  - Congenital hydrocephalus [Unknown]
  - Spina bifida [Unknown]
  - Meningomyelocele [Unknown]
  - Neurogenic bladder [Unknown]
  - Neonatal respiratory failure [Recovered/Resolved]
  - Neurogenic bowel [Unknown]
  - Nervous system disorder [Unknown]
  - Developmental delay [Unknown]
  - Premature baby [Unknown]
  - Motor dysfunction [Unknown]
